FAERS Safety Report 8894770 (Version 2)
Quarter: 2012Q4

REPORT INFORMATION
  Report Type: 
  Country: US (occurrence: US)
  Receive Date: 20121108
  Receipt Date: 20121126
  Transmission Date: 20130627
  Serious: Yes (Hospitalization, Other)
  Sender: FDA-Public Use
  Company Number: US-ASTRAZENECA-2012SE83164

PATIENT
  Age: 87 Year
  Sex: Female

DRUGS (2)
  1. NEXIUM [Suspect]
     Route: 048
  2. UNSPECIFIED INGREDIENT [Suspect]
     Route: 065

REACTIONS (8)
  - Neck pain [Unknown]
  - Musculoskeletal disorder [Unknown]
  - Nerve injury [Unknown]
  - Herpes zoster [Unknown]
  - Blood sodium abnormal [Unknown]
  - Gastrooesophageal reflux disease [Unknown]
  - Intentional drug misuse [Unknown]
  - Abdominal discomfort [Unknown]
